FAERS Safety Report 8118992 (Version 4)
Quarter: 2013Q4

REPORT INFORMATION
  Report Type: Spontaneous
  Country: CN (occurrence: CN)
  Receive Date: 20110902
  Receipt Date: 20131105
  Transmission Date: 20140711
  Serious: Yes (Hospitalization)
  Sender: FDA-Public Use
  Company Number: PHHY2011CN76014

PATIENT
  Age: 61 Year
  Sex: Male
  Weight: 77 kg

DRUGS (5)
  1. ACLASTA [Suspect]
     Indication: OSTEOPOROSIS
     Dosage: 5 MG PER 100 ML
     Route: 042
     Dates: start: 20110721, end: 20110721
  2. INSULIN [Concomitant]
  3. ASPARTAM [Concomitant]
  4. CALTRATE +D [Concomitant]
  5. ALPHA D3 [Concomitant]

REACTIONS (6)
  - Diabetes mellitus [Unknown]
  - Scrotal swelling [Recovering/Resolving]
  - Pyrexia [Recovering/Resolving]
  - Pain [Recovered/Resolved]
  - Oropharyngeal pain [Recovering/Resolving]
  - Rash [Recovering/Resolving]
